FAERS Safety Report 5286394-6 (Version None)
Quarter: 2007Q2

REPORT INFORMATION
  Report Type: 
  Country: None (occurrence: None)
  Receive Date: 20070404
  Receipt Date: 20070330
  Transmission Date: 20071010
  Serious: Yes (Other)
  Sender: FDA-Public Use
  Company Number: 2006UW08279

PATIENT
  Age: 33 Year
  Sex: Male
  Weight: 161.8 kg

DRUGS (3)
  1. SEROQUEL [Suspect]
     Indication: POST-TRAUMATIC STRESS DISORDER
     Route: 048
     Dates: start: 19980616, end: 20041014
  2. THORAZINE [Concomitant]
  3. OLANZAPINE [Concomitant]

REACTIONS (5)
  - DEPRESSION [None]
  - DIABETES MELLITUS [None]
  - OBESITY [None]
  - PANCREATITIS [None]
  - TARDIVE DYSKINESIA [None]
